FAERS Safety Report 10794240 (Version 1)
Quarter: 2015Q1

REPORT INFORMATION
  Report Type: Report from Study
  Country: TR (occurrence: TR)
  Receive Date: 20150213
  Receipt Date: 20150213
  Transmission Date: 20150721
  Serious: Yes (Other)
  Sender: FDA-Public Use
  Company Number: PHHY2012TR096186

PATIENT
  Age: 77 Year
  Sex: Female

DRUGS (4)
  1. TASIGNA [Suspect]
     Active Substance: NILOTINIB
     Dosage: 2 DF IN MORNING AND 1 DF IN EVENING
     Route: 048
  2. TASIGNA [Suspect]
     Active Substance: NILOTINIB
     Dosage: 400 MG, UNK
     Route: 048
  3. TASIGNA [Suspect]
     Active Substance: NILOTINIB
     Dosage: 800 MG, UNK
     Route: 048
     Dates: start: 20140321
  4. TASIGNA [Suspect]
     Active Substance: NILOTINIB
     Indication: CHRONIC MYELOID LEUKAEMIA
     Dosage: 600 MG, DAILY
     Route: 048
     Dates: start: 20091012, end: 20140321

REACTIONS (6)
  - Ear pain [Recovering/Resolving]
  - Osteorrhagia [Recovered/Resolved]
  - Thrombocytopenia [Recovering/Resolving]
  - Contusion [Recovering/Resolving]
  - Drug ineffective [Unknown]
  - Muscle disorder [Recovering/Resolving]

NARRATIVE: CASE EVENT DATE: 2012
